FAERS Safety Report 7503945-9 (Version None)
Quarter: 2011Q2

REPORT INFORMATION
  Report Type: 
  Country: None (occurrence: None)
  Receive Date: 20110525
  Receipt Date: 20110517
  Transmission Date: 20111010
  Serious: Yes (Hospitalization)
  Sender: FDA-Public Use
  Company Number: CH-GENZYME-CLOF-1001342

PATIENT
  Sex: Female
  Weight: 55 kg

DRUGS (12)
  1. CYTARABINE [Suspect]
     Indication: ACUTE MYELOID LEUKAEMIA
     Dosage: 322 MG, QD
     Route: 065
     Dates: start: 20101106, end: 20101112
  2. SOLU-MEDROL [Concomitant]
     Indication: ANTIEMETIC SUPPORTIVE CARE
     Dosage: 125 MG, UNK
     Route: 042
     Dates: start: 20101106, end: 20101112
  3. NEXIUM [Concomitant]
     Indication: PROPHYLAXIS
     Dosage: 40 MG, UNK
     Route: 048
     Dates: start: 20101106, end: 20101129
  4. EVOLTRA [Suspect]
     Indication: ACUTE MYELOID LEUKAEMIA
     Dosage: 24.15 MG, QDX5
     Route: 042
     Dates: start: 20101106, end: 20101110
  5. ALLOPURINOL [Concomitant]
     Indication: NEPHROLITHIASIS
     Dosage: 300 MG, UNK
     Route: 048
     Dates: start: 20101106, end: 20101113
  6. VANCOMYCIN [Concomitant]
     Indication: ENTEROCOCCAL BACTERAEMIA
     Dosage: UNK
     Route: 065
  7. CEFEPIME [Concomitant]
     Indication: NEUTROPENIC COLITIS
     Dosage: UNK
     Route: 065
  8. IDARUBICIN HCL [Suspect]
     Indication: ACUTE MYELOID LEUKAEMIA
     Dosage: 19.3 MG, QD
     Route: 042
     Dates: start: 20101106, end: 20101108
  9. MEROPENEM [Concomitant]
     Indication: NEUTROPENIC COLITIS
     Dosage: UNK
     Route: 065
  10. FLAGYL [Concomitant]
     Indication: PRODUCT USED FOR UNKNOWN INDICATION
     Dosage: UNK
     Route: 065
  11. TAZOBAC [Concomitant]
     Indication: ENTEROCOCCAL BACTERAEMIA
     Dosage: UNK
     Route: 065
  12. GARAMYCIN [Concomitant]
     Indication: ENTEROCOCCAL BACTERAEMIA
     Dosage: UNK
     Route: 065

REACTIONS (6)
  - APLASIA [None]
  - HERPES SIMPLEX [None]
  - NEPHROLITHIASIS [None]
  - ENTEROCOCCAL BACTERAEMIA [None]
  - NEUTROPENIC COLITIS [None]
  - LIVER FUNCTION TEST ABNORMAL [None]
